FAERS Safety Report 5162300-X (Version None)
Quarter: 2006Q4

REPORT INFORMATION
  Report Type: 
  Country: None (occurrence: None)
  Receive Date: 20060919
  Receipt Date: 20060816
  Transmission Date: 20070319
  Serious: No
  Sender: FDA-Public Use
  Company Number: 2006US001869

PATIENT
  Sex: Female

DRUGS (6)
  1. VESICARE [Suspect]
     Indication: HYPERTONIC BLADDER
     Dosage: 5 MG UID/QD
  2. MICARDIS [Concomitant]
  3. PAXIL [Concomitant]
  4. TUMS (MAGNESIUM TRISILICATE, MAGNESIUM CARBONATE) [Concomitant]
  5. VITAMINS NOS (VITAMINS NOS) [Concomitant]
  6. ASPIRIN [Concomitant]

REACTIONS (1)
  - DRUG INEFFECTIVE [None]
